FAERS Safety Report 5007047-5 (Version None)
Quarter: 2006Q2

REPORT INFORMATION
  Report Type: 
  Country: None (occurrence: None)
  Receive Date: 20060517
  Receipt Date: 20060510
  Transmission Date: 20061013
  Serious: Yes (Other)
  Sender: FDA-Public Use
  Company Number: GXKR2006NL02641

PATIENT
  Age: 47 Year
  Sex: Male

DRUGS (1)
  1. TRAMADOL G-TRAM-HGELCAP (TRAMADOL)HARD-GELATIN CAPSULE, 50MG [Suspect]
     Indication: OSTEOARTHRITIS
     Dosage: 50 MG; PRN
     Dates: start: 20060411

REACTIONS (5)
  - AMNESIA [None]
  - CONDITION AGGRAVATED [None]
  - DEPRESSED LEVEL OF CONSCIOUSNESS [None]
  - DRUG INEFFECTIVE [None]
  - OBSESSIVE-COMPULSIVE DISORDER [None]
